FAERS Safety Report 9975737 (Version 1)
Quarter: 2014Q1

REPORT INFORMATION
  Report Type: Spontaneous
  Country: US (occurrence: US)
  Receive Date: 20140306
  Receipt Date: 20140306
  Transmission Date: 20141002
  Serious: Yes (Hospitalization)
  Sender: FDA-Public Use
  Company Number: US-SA-2014SA027297

PATIENT
  Sex: Female

DRUGS (1)
  1. NASACORT AQ [Suspect]
     Indication: HYPERSENSITIVITY
     Route: 065

REACTIONS (2)
  - Adverse event [Unknown]
  - Asthma [Unknown]
